FAERS Safety Report 14908305 (Version 2)
Quarter: 2018Q3

REPORT INFORMATION
  Report Type: Spontaneous
  Country: DE (occurrence: DE)
  Receive Date: 20180517
  Receipt Date: 20180813
  Transmission Date: 20181010
  Serious: Yes (Life-Threatening, Hospitalization, Other)
  Sender: FDA-Public Use
  Company Number: DE-PFIZER INC-2018201596

PATIENT
  Age: 21 Year
  Sex: Male

DRUGS (12)
  1. LEVETIRACETAM. [Concomitant]
     Active Substance: LEVETIRACETAM
     Dosage: 3 G, DAILY
  2. NALOXONE/TILIDINE [Concomitant]
     Dosage: TILIDINE/NALOXON 25/2MG, 10 GTT, UNK
  3. SCOPOLAMIN [Concomitant]
     Active Substance: SCOPOLAMINE
     Dosage: UNK
     Route: 062
  4. PREDNISOLONE. [Concomitant]
     Active Substance: PREDNISOLONE
     Dosage: 10 MG, UNK
  5. ESCITALOPRAM [Interacting]
     Active Substance: ESCITALOPRAM OXALATE
     Dosage: UNK
  6. IVABRADINE [Concomitant]
     Active Substance: IVABRADINE
     Dosage: 15MG, EVERY DAY
  7. COTRIMOXAZOL [Concomitant]
     Active Substance: SULFAMETHOXAZOLE\TRIMETHOPRIM
     Dosage: 960 MG (2 DF), DAILY
     Route: 042
     Dates: start: 20180315, end: 20180319
  8. L?THYROXIN [Concomitant]
     Active Substance: LEVOTHYROXINE SODIUM
     Dosage: 75 UG, UNK
  9. ESOMEPRAZOLE MAGNESIUM. [Interacting]
     Active Substance: ESOMEPRAZOLE MAGNESIUM
     Dosage: 40 MG, UNK
  10. BACLOFEN. [Concomitant]
     Active Substance: BACLOFEN
     Dosage: UNK
  11. LORAZEPAM. [Concomitant]
     Active Substance: LORAZEPAM
     Dosage: 1 MG, DAILY
  12. LINEZOLID. [Suspect]
     Active Substance: LINEZOLID
     Indication: PNEUMONIA STAPHYLOCOCCAL
     Dosage: 2 DOSAGE FORMS (600 MG) EVERY DAY
     Route: 042
     Dates: start: 20180315, end: 20180318

REACTIONS (4)
  - Drug interaction [Not Recovered/Not Resolved]
  - Body temperature increased [Not Recovered/Not Resolved]
  - Serotonin syndrome [Not Recovered/Not Resolved]
  - Status epilepticus [Not Recovered/Not Resolved]

NARRATIVE: CASE EVENT DATE: 20180317
